FAERS Safety Report 20322104 (Version 3)
Quarter: 2025Q1

REPORT INFORMATION
  Report Type: Spontaneous
  Country: BE (occurrence: BE)
  Receive Date: 20220111
  Receipt Date: 20250210
  Transmission Date: 20250409
  Serious: Yes (Hospitalization)
  Sender: PFIZER
  Company Number: None

PATIENT
  Age: 24 Year
  Sex: Female
  Weight: 63 kg

DRUGS (2)
  1. SALAZOPYRINE [Suspect]
     Active Substance: SULFASALAZINE
     Indication: Crohn^s disease
     Dosage: 4 DF, 1X/DAY (2 TIMES PER DAY 2 TABLETS)
     Route: 048
     Dates: start: 20211108, end: 20211206
  2. VENLAFAXINE HYDROCHLORIDE [Concomitant]
     Active Substance: VENLAFAXINE HYDROCHLORIDE
     Indication: Ankylosing spondylitis
     Dosage: 75 MG, 1X/DAY
     Route: 048
     Dates: start: 20211130

REACTIONS (9)
  - Hypoaesthesia [Recovered/Resolved]
  - Idiopathic intracranial hypertension [Recovered/Resolved]
  - Visual snow syndrome [Recovering/Resolving]
  - Dizziness [Recovered/Resolved]
  - Headache [Recovered/Resolved]
  - Cognitive disorder [Recovered/Resolved]
  - Thunderclap headache [Recovered/Resolved]
  - CSF test abnormal [Recovered/Resolved]
  - Meningitis aseptic [Recovered/Resolved]

NARRATIVE: CASE EVENT DATE: 20211115
